FAERS Safety Report 24747409 (Version 1)
Quarter: 2024Q4

REPORT INFORMATION
  Report Type: Spontaneous
  Country: ES (occurrence: ES)
  Receive Date: 20241218
  Receipt Date: 20241218
  Transmission Date: 20250115
  Serious: Yes (Other)
  Sender: HIKMA
  Company Number: ES-HIKMA PHARMACEUTICALS USA INC.-ES-H14001-24-11534

PATIENT
  Age: 62 Year
  Sex: Male

DRUGS (3)
  1. AFLIBERCEPT [Interacting]
     Active Substance: AFLIBERCEPT
     Indication: Colon cancer metastatic
     Dosage: UNK
     Route: 042
     Dates: start: 20240214
  2. FLUOROURACIL [Interacting]
     Active Substance: FLUOROURACIL
     Indication: Colon cancer metastatic
     Dosage: UNK
     Route: 042
     Dates: start: 20240214
  3. IRINOTECAN [Interacting]
     Active Substance: IRINOTECAN
     Indication: Colon cancer metastatic
     Dosage: UNK
     Route: 042
     Dates: start: 20240214

REACTIONS (1)
  - Pulmonary embolism [Unknown]

NARRATIVE: CASE EVENT DATE: 20240711
